FAERS Safety Report 16793321 (Version 1)
Quarter: 2019Q3

REPORT INFORMATION
  Report Type: Spontaneous
  Country: US (occurrence: US)
  Receive Date: 20190911
  Receipt Date: 20190911
  Transmission Date: 20191005
  Serious: Yes (Other)
  Sender: FDA-Public Use
  Company Number: US-SA-2019SA250692

PATIENT
  Age: 63 Year
  Sex: Female
  Weight: 61.2 kg

DRUGS (37)
  1. SODIUM CHLORIDE. [Concomitant]
     Active Substance: SODIUM CHLORIDE
     Indication: ADVERSE EVENT
     Dosage: 1000 MG, UNK
     Route: 065
     Dates: start: 20190610, end: 20190610
  2. FENTANYL. [Concomitant]
     Active Substance: FENTANYL
     Indication: ADVERSE EVENT
     Dosage: 100 MG, UNK
     Route: 065
     Dates: start: 20190610, end: 20190610
  3. EPHEDRINE. [Concomitant]
     Active Substance: EPHEDRINE
     Indication: ADVERSE EVENT
     Dosage: 30 MG, UNK
     Route: 065
     Dates: start: 20190610, end: 20190610
  4. VOLTAREN [DICLOFENAC] [Concomitant]
     Active Substance: DICLOFENAC SODIUM
     Dosage: UNK UNK, UNK
     Route: 065
     Dates: start: 20180223, end: 20190531
  5. PROGESTERONE. [Concomitant]
     Active Substance: PROGESTERONE
     Dosage: 100 MG, UNK
     Route: 065
     Dates: start: 20190531, end: 20190603
  6. FENTANYL. [Concomitant]
     Active Substance: FENTANYL
     Dosage: 50 UNK
     Route: 065
     Dates: start: 20190603, end: 20190603
  7. MIDAZOLAM [Concomitant]
     Active Substance: MIDAZOLAM HYDROCHLORIDE
     Indication: ADVERSE EVENT
     Dosage: 2 MG, UNK
     Route: 065
     Dates: start: 20190610, end: 20190610
  8. DEXAMETHASONE. [Concomitant]
     Active Substance: DEXAMETHASONE
     Indication: ADVERSE EVENT
     Dosage: 10 MG, UNK
     Route: 065
     Dates: start: 20190610, end: 20190610
  9. LACTATED RINGERS SOLUTION [Concomitant]
     Active Substance: CALCIUM CHLORIDE\POTASSIUM CHLORIDE\SODIUM CHLORIDE\SODIUM LACTATE
     Dosage: 20 UNK, UNK
     Route: 065
     Dates: start: 20190603, end: 20190603
  10. ATENOLOL. [Concomitant]
     Active Substance: ATENOLOL
     Dosage: 100 MG, UNK
     Route: 065
     Dates: start: 20190531
  11. IOPAMIDOL [Concomitant]
     Active Substance: IOPAMIDOL
     Dosage: 50 MG, UNK
     Route: 065
     Dates: start: 20190531, end: 20190531
  12. VITAMINS NOS [Concomitant]
     Active Substance: VITAMINS
     Dosage: 1 U, UNK
     Route: 065
     Dates: start: 20190531
  13. LACTATED RINGERS SOLUTION [Concomitant]
     Active Substance: CALCIUM CHLORIDE\POTASSIUM CHLORIDE\SODIUM CHLORIDE\SODIUM LACTATE
     Dosage: 100 MG, UNK
     Route: 065
     Dates: start: 20190531, end: 20190603
  14. ESTRADIOL. [Concomitant]
     Active Substance: ESTRADIOL
     Dosage: 1 MG, UNK
     Route: 065
     Dates: start: 20190531, end: 20190603
  15. PLAVIX [Suspect]
     Active Substance: CLOPIDOGREL BISULFATE
     Indication: THROMBOSIS
     Dosage: 75 MG, UNK
     Route: 048
     Dates: start: 20190601, end: 20190601
  16. PAROXETINE. [Concomitant]
     Active Substance: PAROXETINE
     Dosage: 20 MG, UNK
     Route: 065
     Dates: start: 20190531, end: 20190604
  17. VENLAFAXINE [Concomitant]
     Active Substance: VENLAFAXINE HYDROCHLORIDE
     Dosage: 75 MG, UNK
     Route: 065
     Dates: start: 20190605
  18. CEFAZOLIN [Concomitant]
     Active Substance: CEFAZOLIN
     Indication: ADVERSE EVENT
     Dosage: 1000 MG, UNK
     Route: 065
     Dates: start: 20190610, end: 20190610
  19. LIDOCAINE. [Concomitant]
     Active Substance: LIDOCAINE
     Indication: ADVERSE EVENT
     Dosage: 60 MG, UNK
     Route: 065
     Dates: start: 20190610, end: 20190610
  20. ACETYLSALICYLIC ACID [Suspect]
     Active Substance: ASPIRIN
     Dosage: 100 MG, UNK
     Route: 048
     Dates: start: 20190626, end: 20190626
  21. ACETYLSALICYLIC ACID [Suspect]
     Active Substance: ASPIRIN
     Dosage: 100 MG, UNK
     Route: 048
     Dates: start: 20190601, end: 20190601
  22. ADALIMUMAB [Concomitant]
     Active Substance: ADALIMUMAB
     Dosage: 40 MG, UNK
     Route: 065
     Dates: start: 20190208
  23. CLOBETASOL [Concomitant]
     Active Substance: CLOBETASOL
     Indication: ADVERSE EVENT
     Dosage: 2 G, UNK
     Route: 065
     Dates: start: 20190610
  24. MORPHINE [Concomitant]
     Active Substance: MORPHINE
     Indication: ADVERSE EVENT
     Dosage: 4 MG, UNK
     Route: 065
     Dates: start: 20190610, end: 20190610
  25. GADOBENATE DIMEGLUMINE [Concomitant]
     Active Substance: GADOBENATE DIMEGLUMINE
     Dosage: 10 MG, UNK
     Route: 065
     Dates: start: 20190531, end: 20190531
  26. FOLIC ACID. [Concomitant]
     Active Substance: FOLIC ACID
     Indication: PROPHYLAXIS
     Dosage: 2 MG, UNK
     Route: 065
     Dates: start: 20190531, end: 20190603
  27. MIDAZOLAM [Concomitant]
     Active Substance: MIDAZOLAM HYDROCHLORIDE
     Dosage: 3 MG, UNK
     Route: 065
     Dates: start: 20190603, end: 20190603
  28. CETACAINE [BENZOCAINE;BUTYL AMINOBENZOATE;TETRACAINE HYDROCHLORIDE] [Concomitant]
     Dosage: 2 MG, UNK
     Dates: start: 20190603, end: 20190603
  29. PLAVIX [Suspect]
     Active Substance: CLOPIDOGREL BISULFATE
     Dosage: 75 MG, UNK
     Route: 048
     Dates: start: 20190602, end: 20190625
  30. ACETYLSALICYLIC ACID [Suspect]
     Active Substance: ASPIRIN
     Dosage: 100 MG, UNK
     Route: 048
     Dates: start: 20190602, end: 20190625
  31. METHOTREXATE. [Concomitant]
     Active Substance: METHOTREXATE
     Dosage: 20 MG, UNK
     Route: 065
     Dates: start: 20171117
  32. PROPOFOL. [Concomitant]
     Active Substance: PROPOFOL
     Indication: ADVERSE EVENT
     Dosage: 150 MG, UNK
     Route: 065
     Dates: start: 20190610, end: 20190610
  33. SIMVASTATIN. [Concomitant]
     Active Substance: SIMVASTATIN
     Dosage: 40 MG, UNK
     Route: 065
     Dates: start: 20190531
  34. ACETAMINOPHEN. [Concomitant]
     Active Substance: ACETAMINOPHEN
     Dosage: 650 MG, UNK
     Route: 065
     Dates: start: 20190531
  35. ONDANSETRON [Concomitant]
     Active Substance: ONDANSETRON
     Indication: ADVERSE EVENT
     Dosage: 4 MG, UNK
     Route: 065
     Dates: start: 20190610, end: 20190610
  36. XYLOCAINE [Concomitant]
     Active Substance: LIDOCAINE HYDROCHLORIDE
     Dosage: 10 MG, UNK
     Route: 065
     Dates: start: 20190603, end: 20190603
  37. DICLOFENAC [Concomitant]
     Active Substance: DICLOFENAC
     Dosage: 3 G, UNK
     Route: 065
     Dates: start: 20190223, end: 20190531

REACTIONS (1)
  - Skin laceration [Recovered/Resolved]

NARRATIVE: CASE EVENT DATE: 20190610
